FAERS Safety Report 6457230-7 (Version None)
Quarter: 2009Q4

REPORT INFORMATION
  Report Type: 
  Country: None (occurrence: None)
  Receive Date: 20091125
  Receipt Date: 20091119
  Transmission Date: 20100525
  Serious: Yes (Other)
  Sender: FDA-Public Use
  Company Number: US-JNJCH-2009014376

PATIENT
  Age: 57 Year
  Sex: Female
  Weight: 93.4 kg

DRUGS (5)
  1. LISTERINE WHITENING PRE-BRUSH RINSE [Suspect]
     Indication: DENTAL CARE
     Dosage: TEXT:UNSPECIFIED ONCE
     Route: 048
     Dates: start: 20090521, end: 20090521
  2. LISINOPRIL [Concomitant]
     Indication: DRUG USE FOR UNKNOWN INDICATION
     Dosage: TEXT:20 MG BID
     Route: 048
  3. METOPROLOL [Concomitant]
     Indication: DRUG USE FOR UNKNOWN INDICATION
     Dosage: TEXT:DAILY
     Route: 048
  4. PERCOCET [Concomitant]
     Indication: DRUG USE FOR UNKNOWN INDICATION
     Dosage: TEXT:5/325 MG PRN
     Route: 048
  5. SOMA [Concomitant]
     Indication: DRUG USE FOR UNKNOWN INDICATION
     Dosage: TEXT:350 MG PRN
     Route: 048

REACTIONS (5)
  - ANAPHYLACTIC REACTION [None]
  - CHEILITIS [None]
  - DYSPHAGIA [None]
  - GLOSSITIS [None]
  - ORAL CANDIDIASIS [None]
